FAERS Safety Report 4663891-5 (Version None)
Quarter: 2005Q2

REPORT INFORMATION
  Report Type: 
  Country: None (occurrence: None)
  Receive Date: 20050516
  Receipt Date: 20050503
  Transmission Date: 20051028
  Serious: Yes (Death, Other)
  Sender: FDA-Public Use
  Company Number: US-2005-007011

PATIENT
  Sex: Male

DRUGS (2)
  1. CAMPATH [Suspect]
     Dosage: SEE IMAGE
     Dates: end: 20050401
  2. CAMPATH [Suspect]
     Dosage: SEE IMAGE
     Dates: start: 20050304

REACTIONS (4)
  - ANAEMIA [None]
  - RENAL FAILURE [None]
  - RESPIRATORY DISORDER [None]
  - WHITE BLOOD CELL COUNT INCREASED [None]
